FAERS Safety Report 5838469-8 (Version None)
Quarter: 2008Q3

REPORT INFORMATION
  Report Type: 
  Country: None (occurrence: None)
  Receive Date: 20080806
  Receipt Date: 20080728
  Transmission Date: 20090109
  Serious: Yes (Disabling, Other)
  Sender: FDA-Public Use
  Company Number: 163-20785-08070370

PATIENT
  Age: 76 Year
  Sex: Male

DRUGS (3)
  1. THALOMID [Suspect]
     Indication: MULTIPLE MYELOMA
     Dosage: 100 MG, 1 IN 1 D, ORAL
     Route: 048
     Dates: start: 20080410, end: 20080401
  2. ERYTHROPOETIN(EPOETIN ALFA) [Concomitant]
  3. DARBEPOETIN (DARBEPOETIN ALFA) [Concomitant]

REACTIONS (1)
  - NEUROTOXICITY [None]
